FAERS Safety Report 8595916 (Version 4)
Quarter: 2013Q3

REPORT INFORMATION
  Report Type: Spontaneous
  Country: US (occurrence: US)
  Receive Date: 20120605
  Receipt Date: 20130809
  Transmission Date: 20140515
  Serious: Yes (Hospitalization, Disabling, Other)
  Sender: FDA-Public Use
  Company Number: US-ASTRAZENECA-2012SE35246

PATIENT
  Age: 43 Year
  Sex: Female
  Weight: 84.8 kg

DRUGS (19)
  1. NEXIUM [Suspect]
     Indication: GASTROOESOPHAGEAL REFLUX DISEASE
     Route: 048
     Dates: start: 2001, end: 2008
  2. NEXIUM [Suspect]
     Indication: GASTROOESOPHAGEAL REFLUX DISEASE
     Route: 048
     Dates: start: 20061024
  3. OMEPRAZOLE [Suspect]
     Indication: GASTROOESOPHAGEAL REFLUX DISEASE
     Route: 048
  4. ROLAIDS [Concomitant]
  5. METFORMIN [Concomitant]
     Indication: DIABETES MELLITUS
  6. ASPIRIN [Concomitant]
     Indication: ANTICOAGULANT THERAPY
  7. AMLODIPINE [Concomitant]
     Indication: BLOOD PRESSURE
  8. LISINOPRIL [Concomitant]
     Indication: BLOOD PRESSURE
  9. CELIPIZIDE [Concomitant]
     Indication: DIABETES MELLITUS
  10. PRAVASTATIN [Concomitant]
     Indication: BLOOD CHOLESTEROL
  11. PLAVIX [Concomitant]
     Indication: ANTICOAGULANT THERAPY
  12. AVANDIA [Concomitant]
     Indication: DIABETES MELLITUS
  13. JANUVIA [Concomitant]
     Indication: DIABETES MELLITUS
  14. TUMS [Concomitant]
  15. LORCET [Concomitant]
  16. AMARYL [Concomitant]
  17. LASIX [Concomitant]
  18. VERAPAMIL [Concomitant]
  19. CAPTOPRIL [Concomitant]

REACTIONS (16)
  - Cardiac disorder [Unknown]
  - Neuropathy peripheral [Unknown]
  - Myocardial infarction [Unknown]
  - Coronary artery disease [Unknown]
  - Osteoporosis [Unknown]
  - Bone disorder [Unknown]
  - Fracture [Unknown]
  - Ankle fracture [Unknown]
  - Angina pectoris [Unknown]
  - Arthritis [Unknown]
  - Diabetes mellitus [Unknown]
  - Hypothyroidism [Unknown]
  - Foot fracture [Unknown]
  - Fibula fracture [Unknown]
  - Fibromyalgia [Unknown]
  - Depression [Unknown]
